FAERS Safety Report 9559279 (Version 1)
Quarter: 2013Q3

REPORT INFORMATION
  Report Type: Spontaneous
  Country: US (occurrence: None)
  Receive Date: 20130925
  Receipt Date: 20130925
  Transmission Date: 20140515
  Serious: Yes (Death)
  Sender: FDA-Public Use
  Company Number: UTC-038082

PATIENT
  Age: 66 Year
  Sex: Male
  Weight: 97.27 kg

DRUGS (3)
  1. TYVASO (6 MICROGRAM, AEROSOL FOR INHALATION) (TREPROSTINIL SODIUM) [Suspect]
     Indication: COR PULMONALE CHRONIC
     Dosage: 288 MCG (72 MCG, 4 IN 1 D), INHALATION
     Route: 055
     Dates: start: 20121228
  2. REVATIO (SILDENAFIL CITRATE (UNKNOWN) [Concomitant]
  3. TRACLEER (BOSENTAN) (UNKNOWN) [Concomitant]

REACTIONS (1)
  - Death [None]
